FAERS Safety Report 6025878-X (Version None)
Quarter: 2008Q4

REPORT INFORMATION
  Report Type: 
  Country: None (occurrence: None)
  Receive Date: 20081216
  Receipt Date: 20081202
  Transmission Date: 20090506
  Serious: Yes (Death, Hospitalization)
  Sender: FDA-Public Use
  Company Number: WSDF_00765

PATIENT
  Age: 81 Year
  Sex: Female

DRUGS (2)
  1. WINRHO SDF /00915801/ [Suspect]
     Indication: IDIOPATHIC THROMBOCYTOPENIC PURPURA
     Dosage: 4000 MCG IV
     Route: 042
  2. IRON /03292501/ [Concomitant]

REACTIONS (19)
  - ABDOMINAL PAIN [None]
  - BLOOD FIBRINOGEN INCREASED [None]
  - CARDIO-RESPIRATORY ARREST [None]
  - CEREBRAL ATROPHY [None]
  - CEREBRAL HAEMORRHAGE [None]
  - CHEST PAIN [None]
  - EMBOLIC STROKE [None]
  - ENCEPHALOPATHY [None]
  - EPISTAXIS [None]
  - FIBRIN D DIMER INCREASED [None]
  - INFECTION [None]
  - INFLAMMATION [None]
  - INTRAVASCULAR HAEMOLYSIS [None]
  - PNEUMONIA ASPIRATION [None]
  - PROTHROMBIN TIME PROLONGED [None]
  - STATUS EPILEPTICUS [None]
  - THROMBOTIC THROMBOCYTOPENIC PURPURA [None]
  - UNRESPONSIVE TO STIMULI [None]
  - VASCULITIS [None]
